FAERS Safety Report 7347146-6 (Version None)
Quarter: 2011Q1

REPORT INFORMATION
  Report Type: 
  Country: None (occurrence: None)
  Receive Date: 20110303
  Receipt Date: 20110222
  Transmission Date: 20110831
  Serious: Yes (Other)
  Sender: FDA-Public Use
  Company Number: ZYD-11-AE-027

PATIENT
  Age: 27 Year
  Sex: Female

DRUGS (7)
  1. KLONOPIN [Concomitant]
  2. OMEPRAZOLE [Concomitant]
  3. ZOLOFT [Concomitant]
  4. HYOSCYAMINE [Concomitant]
  5. SYMBICORT [Concomitant]
  6. VENTOLIN [Concomitant]
  7. TOPIRAMATE 25MG TABLETS (ZYDUS) [Suspect]
     Indication: BACK PAIN
     Dosage: 25MG - DAILY - ORAL
     Route: 048
     Dates: start: 20110210, end: 20110214

REACTIONS (2)
  - INTRAOCULAR PRESSURE INCREASED [None]
  - PAPILLOEDEMA [None]
